FAERS Safety Report 13608707 (Version 1)
Quarter: 2017Q2

REPORT INFORMATION
  Report Type: Spontaneous
  Country: US (occurrence: US)
  Receive Date: 20170602
  Receipt Date: 20170602
  Transmission Date: 20170830
  Serious: No
  Sender: FDA-Public Use
  Company Number: US-UPSHER-SMITH LABORATORIES, INC.-2017USL00003

PATIENT
  Sex: Female
  Weight: 82.54 kg

DRUGS (1)
  1. NIACIN. [Suspect]
     Active Substance: NIACIN

REACTIONS (1)
  - Hypersensitivity [Unknown]
